FAERS Safety Report 5413073-4 (Version None)
Quarter: 2007Q3

REPORT INFORMATION
  Report Type: 
  Country: None (occurrence: None)
  Receive Date: 20070713
  Receipt Date: 20070403
  Transmission Date: 20080115
  Serious: No
  Sender: FDA-Public Use
  Company Number: 2007SP001203

PATIENT
  Age: 79 Year
  Sex: Female
  Weight: 95.2554 kg

DRUGS (18)
  1. LUNESTA [Suspect]
     Indication: INITIAL INSOMNIA
     Dosage: 2 MG; HS; ORAL, 4 MG; ORAL, 3 MG; ORAL
     Route: 048
     Dates: start: 20070330, end: 20070330
  2. LUNESTA [Suspect]
     Indication: INITIAL INSOMNIA
     Dosage: 2 MG; HS; ORAL, 4 MG; ORAL, 3 MG; ORAL
     Route: 048
     Dates: start: 20070330, end: 20070330
  3. LUNESTA [Suspect]
     Indication: INITIAL INSOMNIA
     Dosage: 2 MG; HS; ORAL, 4 MG; ORAL, 3 MG; ORAL
     Route: 048
     Dates: start: 20070401
  4. ZETIA [Concomitant]
  5. K-DUR 10 [Concomitant]
  6. ATORVASTATIN CALCIUM [Concomitant]
  7. SINGULAIR [Concomitant]
  8. TAMSULOSIN HCL [Concomitant]
  9. HYDROCHLORIDE [Concomitant]
  10. PANTOPRAZOLE SODIUM [Concomitant]
  11. WARFARIN SODIUM [Concomitant]
  12. COMBIVENT [Concomitant]
  13. VITAMIN CAP [Concomitant]
  14. FERROUS SULFATE TAB [Concomitant]
  15. DULCOLAX [Concomitant]
  16. ASCORBIC ACID [Concomitant]
  17. VITAMIN B COMPLEX CAP [Concomitant]
  18. GELATIN [Concomitant]

REACTIONS (2)
  - DRUG INEFFECTIVE [None]
  - INSOMNIA [None]
